FAERS Safety Report 12909070 (Version 1)
Quarter: 2016Q4

REPORT INFORMATION
  Report Type: Spontaneous
  Country: US (occurrence: US)
  Receive Date: 20161103
  Receipt Date: 20161103
  Transmission Date: 20170207
  Serious: No
  Sender: FDA-Public Use
  Company Number: US-JAZZ-2016-US-016931

PATIENT
  Sex: Female

DRUGS (10)
  1. XYREM [Suspect]
     Active Substance: SODIUM OXYBATE
     Indication: NARCOLEPSY
     Dosage: 2.25 G, BID
     Route: 048
     Dates: start: 201511, end: 201511
  2. XYREM [Suspect]
     Active Substance: SODIUM OXYBATE
     Indication: CATAPLEXY
     Dosage: DOSE ADJUSTMENTS
     Route: 048
     Dates: start: 201511, end: 201605
  3. XYREM [Suspect]
     Active Substance: SODIUM OXYBATE
     Dosage: 3.5 G, BID
     Route: 048
     Dates: start: 201605
  4. CELEXA [Concomitant]
     Active Substance: CITALOPRAM HYDROBROMIDE
  5. ZOLOFT [Concomitant]
     Active Substance: SERTRALINE HYDROCHLORIDE
  6. WELLBUTRIN XL [Concomitant]
     Active Substance: BUPROPION HYDROCHLORIDE
  7. TOPAMAX [Concomitant]
     Active Substance: TOPIRAMATE
  8. PROGESTERONE. [Concomitant]
     Active Substance: PROGESTERONE
  9. TREXIMET [Concomitant]
     Active Substance: NAPROXEN SODIUM\SUMATRIPTAN SUCCINATE
  10. ROBAXIN [Concomitant]
     Active Substance: METHOCARBAMOL

REACTIONS (3)
  - Back disorder [Unknown]
  - Muscle disorder [Unknown]
  - Migraine [Unknown]
